FAERS Safety Report 24764484 (Version 3)
Quarter: 2025Q2

REPORT INFORMATION
  Report Type: Report from Study
  Country: US (occurrence: US)
  Receive Date: 20241223
  Receipt Date: 20250415
  Transmission Date: 20250717
  Serious: Yes (Hospitalization, Other)
  Sender: TAKEDA
  Company Number: US-TAKEDA-2024TUS125751

PATIENT
  Sex: Female
  Weight: 109 kg

DRUGS (50)
  1. LANADELUMAB [Suspect]
     Active Substance: LANADELUMAB
     Indication: Immune system disorder
     Dosage: 300 MILLIGRAM, Q2WEEKS
     Dates: start: 20241010
  2. LANADELUMAB [Suspect]
     Active Substance: LANADELUMAB
  3. LANADELUMAB [Suspect]
     Active Substance: LANADELUMAB
  4. ELIQUIS [Suspect]
     Active Substance: APIXABAN
     Indication: Product used for unknown indication
  5. CARVEDILOL [Concomitant]
     Active Substance: CARVEDILOL
  6. CYMBALTA [Concomitant]
     Active Substance: DULOXETINE HYDROCHLORIDE
  7. AMLODIPINE BESYLATE [Concomitant]
     Active Substance: AMLODIPINE BESYLATE
  8. CLOBETASOL PROPIONATE [Concomitant]
     Active Substance: CLOBETASOL PROPIONATE
  9. NABUMETONE [Concomitant]
     Active Substance: NABUMETONE
  10. MODAFINIL [Concomitant]
     Active Substance: MODAFINIL
  11. ATORVASTATIN CALCIUM [Concomitant]
     Active Substance: ATORVASTATIN CALCIUM
  12. VALACYCLOVIR [Concomitant]
     Active Substance: VALACYCLOVIR HYDROCHLORIDE
  13. COLCHICINE [Concomitant]
     Active Substance: COLCHICINE
  14. JUNEL FE 1/20 [Concomitant]
     Active Substance: ETHINYL ESTRADIOL\NORETHINDRONE ACETATE
  15. MYRBETRIQ [Concomitant]
     Active Substance: MIRABEGRON
  16. XOLAIR [Concomitant]
     Active Substance: OMALIZUMAB
  17. HUMALOG [Concomitant]
     Active Substance: INSULIN LISPRO
  18. CORLANOR [Concomitant]
     Active Substance: IVABRADINE HYDROCHLORIDE
  19. GAMMAGARD LIQUID [Concomitant]
     Active Substance: HUMAN IMMUNOGLOBULIN G
  20. BUTRANS [Concomitant]
     Active Substance: BUPRENORPHINE
  21. PROTONIX [Concomitant]
     Active Substance: PANTOPRAZOLE SODIUM
  22. ACTEMRA ACTPEN [Concomitant]
     Active Substance: TOCILIZUMAB
  23. VITAMIN D [Concomitant]
     Active Substance: VITAMIN D NOS
  24. PROMETHAZINE HYDROCHLORIDE [Concomitant]
     Active Substance: PROMETHAZINE HYDROCHLORIDE
  25. SUNOSI [Concomitant]
     Active Substance: SOLRIAMFETOL
  26. BACLOFEN [Concomitant]
     Active Substance: BACLOFEN
  27. SALINE [Concomitant]
     Active Substance: SODIUM CHLORIDE
  28. ALBUTEROL SULFATE [Concomitant]
     Active Substance: ALBUTEROL SULFATE
  29. LOSARTAN POTASSIUM [Concomitant]
     Active Substance: LOSARTAN POTASSIUM
  30. DOXEPIN HYDROCHLORIDE [Concomitant]
     Active Substance: DOXEPIN HYDROCHLORIDE
  31. NASONEX [Concomitant]
     Active Substance: MOMETASONE FUROATE
  32. BENTYL [Concomitant]
     Active Substance: DICYCLOMINE HYDROCHLORIDE
  33. SYMBICORT [Concomitant]
     Active Substance: BUDESONIDE\FORMOTEROL FUMARATE DIHYDRATE
  34. TRAMADOL HCL [Concomitant]
     Active Substance: TRAMADOL HYDROCHLORIDE
  35. MONTELUKAST SODIUM [Concomitant]
     Active Substance: MONTELUKAST SODIUM
  36. LANTUS [Concomitant]
     Active Substance: INSULIN GLARGINE
  37. NYSTATIN [Concomitant]
     Active Substance: NYSTATIN
  38. ONDANSETRON HYDROCHLORIDE [Concomitant]
     Active Substance: ONDANSETRON HYDROCHLORIDE
  39. METFORMIN HYDROCHLORIDE [Concomitant]
     Active Substance: METFORMIN HYDROCHLORIDE
  40. ACETAMINOPHEN [Concomitant]
     Active Substance: ACETAMINOPHEN
  41. ATROVENT HFA [Concomitant]
     Active Substance: IPRATROPIUM BROMIDE
  42. HYDROXYZINE HYDROCHLORIDE [Concomitant]
     Active Substance: HYDROXYZINE HYDROCHLORIDE
  43. SAJAZIR [Concomitant]
     Active Substance: ICATIBANT ACETATE
  44. MOUNJARO [Concomitant]
     Active Substance: TIRZEPATIDE
  45. XYZAL [Concomitant]
     Active Substance: LEVOCETIRIZINE DIHYDROCHLORIDE
  46. DIPHENHYDRAMINE HYDROCHLORIDE [Concomitant]
     Active Substance: DIPHENHYDRAMINE HYDROCHLORIDE
  47. RELPAX [Concomitant]
     Active Substance: ELETRIPTAN HYDROBROMIDE
  48. UBRELVY [Concomitant]
     Active Substance: UBROGEPANT
  49. CORTISONE ACETATE [Concomitant]
     Active Substance: CORTISONE ACETATE
  50. TRIAMCINOLONE ACETONIDE [Concomitant]
     Active Substance: TRIAMCINOLONE ACETONIDE

REACTIONS (4)
  - Staphylococcal bacteraemia [Unknown]
  - Sepsis [Unknown]
  - Illness [Unknown]
  - Localised infection [Unknown]
